FAERS Safety Report 22092760 (Version 1)
Quarter: 2023Q1

REPORT INFORMATION
  Report Type: Spontaneous
  Country: CH (occurrence: None)
  Receive Date: 20230314
  Receipt Date: 20230314
  Transmission Date: 20230418
  Serious: Yes (Hospitalization)
  Sender: FDA-Public Use
  Company Number: 2023A054569

PATIENT
  Age: 61 Year
  Sex: Male

DRUGS (9)
  1. CRESTOR [Suspect]
     Active Substance: ROSUVASTATIN CALCIUM
     Dosage: 10.0MG UNKNOWN
     Route: 048
     Dates: start: 202210
  2. VESICARE [Suspect]
     Active Substance: SOLIFENACIN SUCCINATE
     Indication: Micturition urgency
     Dates: start: 202301
  3. ENALAPRIL [Suspect]
     Active Substance: ENALAPRIL
     Dates: end: 20230226
  4. ASPIRIN [Concomitant]
     Active Substance: ASPIRIN
  5. CHONDROITIN SULFATE (CHICKEN) [Concomitant]
     Active Substance: CHONDROITIN SULFATE (CHICKEN)
  6. HYALURONATE SODIUM [Concomitant]
     Active Substance: HYALURONATE SODIUM
  7. METAMUCIL [Concomitant]
     Active Substance: PLANTAGO SEED
  8. RETINOL [Concomitant]
     Active Substance: RETINOL
  9. MOVICOL [Concomitant]
     Active Substance: POLYETHYLENE GLYCOL 3350\POTASSIUM CHLORIDE\SODIUM BICARBONATE\SODIUM CHLORIDE

REACTIONS (2)
  - Pancreatitis acute [Not Recovered/Not Resolved]
  - Decreased appetite [Not Recovered/Not Resolved]

NARRATIVE: CASE EVENT DATE: 20230101
